FAERS Safety Report 8971288 (Version 1)
Quarter: 2012Q4

REPORT INFORMATION
  Report Type: 
  Country: JP (occurrence: JP)
  Receive Date: 20121218
  Receipt Date: 20121218
  Transmission Date: 20130627
  Serious: Yes (Other)
  Sender: FDA-Public Use
  Company Number: JP-ROCHE-1168085

PATIENT
  Age: 8 Year
  Sex: Male

DRUGS (3)
  1. PEGASYS [Suspect]
     Indication: CHRONIC HEPATITIS C
     Route: 058
     Dates: start: 20070620, end: 20080516
  2. ALESION [Concomitant]
     Indication: DERMATITIS ATOPIC
     Route: 048
  3. CALONAL [Concomitant]
     Indication: PROPHYLAXIS
     Dosage: A dose at thermacogenesis
     Route: 048
     Dates: start: 20070620, end: 20070627

REACTIONS (3)
  - Failure to thrive [Recovering/Resolving]
  - Pyrexia [Recovered/Resolved]
  - Arthralgia [Recovered/Resolved]
